FAERS Safety Report 5992115-1 (Version None)
Quarter: 2008Q4

REPORT INFORMATION
  Report Type: 
  Country: None (occurrence: None)
  Receive Date: 20081211
  Receipt Date: 20081204
  Transmission Date: 20090506
  Serious: Yes (Disabling)
  Sender: FDA-Public Use
  Company Number: DK-MERCK-0810DNK00013

PATIENT
  Age: 18 Year
  Sex: Female
  Weight: 75 kg

DRUGS (3)
  1. ATORVASTATIN CALCIUM [Suspect]
     Indication: TYPE IIA HYPERLIPIDAEMIA
     Route: 048
     Dates: start: 19990801, end: 20080210
  2. ETHINYL ESTRADIOL AND GESTODENE [Suspect]
     Indication: CONTRACEPTION
     Route: 048
     Dates: start: 20060719, end: 20071010
  3. ZETIA [Suspect]
     Indication: TYPE IIA HYPERLIPIDAEMIA
     Route: 048
     Dates: start: 20020701, end: 20080210

REACTIONS (3)
  - DRUG INTERACTION [None]
  - DRY SKIN [None]
  - ECZEMA [None]
